FAERS Safety Report 5549557-8 (Version None)
Quarter: 2007Q4

REPORT INFORMATION
  Report Type: 
  Country: None (occurrence: None)
  Receive Date: 20071212
  Receipt Date: 20071130
  Transmission Date: 20080405
  Serious: Yes (Other)
  Sender: FDA-Public Use
  Company Number: HQWYE454529APR05

PATIENT
  Sex: Female

DRUGS (3)
  1. PREMPRO [Suspect]
     Dosage: UNKNOWN
     Dates: start: 19981122, end: 19991119
  2. PROVERA [Suspect]
  3. PREMARIN [Suspect]
     Dosage: UNKNOWN
     Dates: start: 19951106, end: 19981122

REACTIONS (1)
  - BREAST CANCER METASTATIC [None]
